FAERS Safety Report 9735029 (Version 1)
Quarter: 2013Q4

REPORT INFORMATION
  Report Type: Spontaneous
  Country: US (occurrence: None)
  Receive Date: 20131204
  Receipt Date: 20131204
  Transmission Date: 20140711
  Serious: Yes (Death)
  Sender: FDA-Public Use
  Company Number: US-ALKEM-000296

PATIENT
  Age: 43 Year
  Sex: Male

DRUGS (5)
  1. GABAPENTIN (GABAPENTIN) [Suspect]
     Route: 048
  2. ETHANOL (ETHANOL) (UNKNOWN) (ETHANOL) [Suspect]
  3. HYDROCODONE (HYDROCODONE) [Suspect]
     Route: 048
  4. BUPRENORPHINE [Suspect]
     Route: 048
  5. OXYCODONE (OXYCODONE) [Suspect]
     Route: 048

REACTIONS (2)
  - Exposure via ingestion [None]
  - Death [None]
